FAERS Safety Report 5922586-8 (Version None)
Quarter: 2008Q4

REPORT INFORMATION
  Report Type: 
  Country: None (occurrence: None)
  Receive Date: 20081017
  Receipt Date: 20081002
  Transmission Date: 20090506
  Serious: Yes (Death)
  Sender: FDA-Public Use
  Company Number: JP-ROCHE-585299

PATIENT
  Sex: Male

DRUGS (3)
  1. MYCOPHENOLATE MOFETIL [Suspect]
     Indication: GRAFT VERSUS HOST DISEASE
     Route: 048
     Dates: start: 20050324, end: 20050326
  2. PROGRAF [Concomitant]
     Route: 041
     Dates: start: 20041220, end: 20050326
  3. MEROPEN [Concomitant]
     Route: 041
     Dates: start: 20050324, end: 20050326

REACTIONS (1)
  - TRANSPLANT REJECTION [None]
